FAERS Safety Report 12991202 (Version 1)
Quarter: 2016Q4

REPORT INFORMATION
  Report Type: Spontaneous
  Country: US (occurrence: US)
  Receive Date: 20161201
  Receipt Date: 20161201
  Transmission Date: 20170207
  Serious: No
  Sender: FDA-Public Use
  Company Number: US-PURDUE-USA-2016-0133549

PATIENT
  Age: 45 Year
  Sex: Female

DRUGS (1)
  1. OXYCODONE/ ACETAMINOPHEN TABLETS [Suspect]
     Active Substance: ACETAMINOPHEN\OXYCODONE HYDROCHLORIDE
     Indication: ANALGESIC THERAPY
     Dosage: 10/325 MG, 4-6 TIMES DAILY
     Route: 048
     Dates: start: 20160823

REACTIONS (9)
  - Vomiting [Unknown]
  - Abdominal discomfort [Unknown]
  - Nausea [Unknown]
  - Rash [Not Recovered/Not Resolved]
  - Constipation [Unknown]
  - Fluid retention [Unknown]
  - Pruritus [Unknown]
  - Joint swelling [Not Recovered/Not Resolved]
  - Swelling face [Not Recovered/Not Resolved]

NARRATIVE: CASE EVENT DATE: 20160825
